FAERS Safety Report 25226788 (Version 1)
Quarter: 2025Q2

REPORT INFORMATION
  Report Type: Spontaneous
  Country: US (occurrence: None)
  Receive Date: 20250422
  Receipt Date: 20250422
  Transmission Date: 20250716
  Serious: Yes (Life-Threatening, Hospitalization)
  Sender: FDA-CTU
  Company Number: None

PATIENT
  Age: 65 Year
  Sex: Female
  Weight: 103.5 kg

DRUGS (2)
  1. GAMMAKED [Suspect]
     Active Substance: HUMAN IMMUNOGLOBULIN G
     Dosage: OTHER FREQUENCY : WEEKLY;?
     Route: 058
     Dates: start: 20250225, end: 20250421
  2. EPIPEN [Suspect]
     Active Substance: EPINEPHRINE

REACTIONS (3)
  - Dyspnoea [None]
  - No reaction on previous exposure to drug [None]
  - Device deployment issue [None]

NARRATIVE: CASE EVENT DATE: 20250421
